FAERS Safety Report 9239394 (Version 4)
Quarter: 2014Q2

REPORT INFORMATION
  Report Type: Report from Study
  Country: CA (occurrence: CA)
  Receive Date: 20130418
  Receipt Date: 20140425
  Transmission Date: 20141212
  Serious: Yes (Other)
  Sender: FDA-Public Use
  Company Number: CA-ROCHE-1215553

PATIENT
  Sex: Female

DRUGS (2)
  1. LUCENTIS [Suspect]
     Indication: DIABETIC RETINAL OEDEMA
     Dosage: LEFT EYE
     Route: 050
     Dates: start: 201210
  2. LUCENTIS [Suspect]
     Dosage: LEFT EYE
     Route: 050
     Dates: start: 201302

REACTIONS (2)
  - Eye haemorrhage [Unknown]
  - Cataract [Unknown]
